FAERS Safety Report 11460454 (Version 2)
Quarter: 2015Q3

REPORT INFORMATION
  Report Type: Spontaneous
  Country: FI (occurrence: FI)
  Receive Date: 20150904
  Receipt Date: 20150915
  Transmission Date: 20151125
  Serious: Yes (Hospitalization, Other)
  Sender: FDA-Public Use
  Company Number: FI-INCYTE CORPORATION-2015IN003101

PATIENT
  Age: 85 Year
  Sex: Male
  Weight: 40 kg

DRUGS (3)
  1. JAKAFI [Suspect]
     Active Substance: RUXOLITINIB
     Indication: MYELOFIBROSIS
     Dosage: 15 MG, TWICE DAILY
     Route: 065
     Dates: start: 20150515, end: 20150615
  2. JAKAFI [Suspect]
     Active Substance: RUXOLITINIB
     Dosage: 5 MG, TWICE DAILY
     Route: 065
     Dates: start: 20150729, end: 2015
  3. JAKAFI [Suspect]
     Active Substance: RUXOLITINIB
     Dosage: UNK
     Route: 065
     Dates: start: 2015, end: 20150810

REACTIONS (9)
  - Clostridium difficile colitis [Unknown]
  - General physical health deterioration [Unknown]
  - Cardiac failure [Unknown]
  - Lung infection [Recovered/Resolved]
  - Haemoglobin decreased [Unknown]
  - Platelet count increased [Unknown]
  - Cachexia [Unknown]
  - Dyspnoea [Unknown]
  - Myocardial ischaemia [Unknown]

NARRATIVE: CASE EVENT DATE: 2015
